FAERS Safety Report 13573006 (Version 1)
Quarter: 2017Q2

REPORT INFORMATION
  Report Type: Spontaneous
  Country: US (occurrence: US)
  Receive Date: 20170523
  Receipt Date: 20170523
  Transmission Date: 20170830
  Serious: No
  Sender: FDA-Public Use
  Company Number: US-NOVOPROD-523554

PATIENT
  Age: 70 Year
  Sex: Male

DRUGS (1)
  1. NORDITROPIN [Suspect]
     Active Substance: SOMATROPIN
     Indication: UNEVALUABLE THERAPY
     Route: 058
     Dates: start: 2013

REACTIONS (6)
  - Headache [Recovering/Resolving]
  - Dizziness [Recovering/Resolving]
  - Diarrhoea [Unknown]
  - Product use in unapproved indication [Unknown]
  - Hyperhidrosis [Recovering/Resolving]
  - Hot flush [Recovering/Resolving]

NARRATIVE: CASE EVENT DATE: 20161212
